FAERS Safety Report 6016115-0 (Version None)
Quarter: 2008Q4

REPORT INFORMATION
  Report Type: 
  Country: None (occurrence: None)
  Receive Date: 20081222
  Receipt Date: 20081219
  Transmission Date: 20090506
  Serious: Yes (Death, Hospitalization, Other)
  Sender: FDA-Public Use
  Company Number: GB-WYE-G02252008

PATIENT

DRUGS (3)
  1. GEMTUZUMAB OZOGAMICIN [Suspect]
     Dosage: 5.7MG, FREQUENCY UNSPECIFIED
     Route: 041
     Dates: start: 20080908, end: 20080917
  2. ARA-C [Suspect]
     Dosage: UNKNOWN
     Dates: start: 20080908, end: 20080917
  3. DAUNORUBICIN [Suspect]
     Dosage: 95MG, FREQUECY UNSPECIFIED
     Route: 042
     Dates: start: 20080908, end: 20080917

REACTIONS (13)
  - ALPHA HAEMOLYTIC STREPTOCOCCAL INFECTION [None]
  - ATRIAL FIBRILLATION [None]
  - BREATH SOUNDS ABNORMAL [None]
  - CEREBRAL HAEMORRHAGE [None]
  - CONDITION AGGRAVATED [None]
  - DISEASE PROGRESSION [None]
  - LOSS OF CONSCIOUSNESS [None]
  - NEPHROLITHIASIS [None]
  - OXYGEN SATURATION DECREASED [None]
  - RENAL IMPAIRMENT [None]
  - STAPHYLOCOCCAL INFECTION [None]
  - TACHYCARDIA [None]
  - TACHYPNOEA [None]
